FAERS Safety Report 23640126 (Version 1)
Quarter: 2024Q1

REPORT INFORMATION
  Report Type: Spontaneous
  Country: DE (occurrence: DE)
  Receive Date: 20240317
  Receipt Date: 20240317
  Transmission Date: 20240409
  Serious: Yes (Death, Other)
  Sender: FDA-Public Use
  Company Number: None

PATIENT
  Age: 83 Year
  Sex: Male
  Weight: 78 kg

DRUGS (10)
  1. ALLOPURINOL [Suspect]
     Active Substance: ALLOPURINOL
     Indication: Prophylaxis
     Dosage: 1-0-0 100 MG
     Dates: end: 20240208
  2. LITHIUM [Suspect]
     Active Substance: LITHIUM
     Indication: Bipolar disorder
     Dosage: 1-0-0
     Dates: start: 2013, end: 2023
  3. BUPROPION HYDROCHLORIDE [Concomitant]
     Active Substance: BUPROPION HYDROCHLORIDE
     Indication: Depression
     Dosage: 1-0-0 150 MG TBL
     Dates: end: 20240208
  4. PANTOPRAZOLE [Concomitant]
     Active Substance: PANTOPRAZOLE
     Indication: Gastrointestinal disorder prophylaxis
     Dosage: 1-0-0 20 MG MRT
     Dates: start: 2024, end: 20240208
  5. TAMSULOSIN [Concomitant]
     Active Substance: TAMSULOSIN
     Indication: Pollakiuria
     Dosage: 1-0-0 0.4 MG REK
     Dates: start: 20240129, end: 20240208
  6. NOVORAPID [Concomitant]
     Active Substance: INSULIN ASPART
     Indication: Blood glucose increased
     Dosage: 3-2-1 IU
     Dates: start: 20240203, end: 20240208
  7. RAMIPRIL [Concomitant]
     Active Substance: RAMIPRIL
     Indication: Hypertension
     Dosage: 1-0-0 5 MG TBL
     Dates: end: 20240208
  8. INNOHEP [Concomitant]
     Active Substance: TINZAPARIN SODIUM
     Indication: Thrombosis prophylaxis
     Dosage: 1-0-0 3,500 IU PRE-FILLED SYRINGES
     Dates: start: 20240130, end: 20240208
  9. LITHIUM [Suspect]
     Active Substance: LITHIUM
     Indication: Bipolar disorder
     Dosage: 1-0-0
     Dates: start: 2023, end: 20240206
  10. LITHIUM [Suspect]
     Active Substance: LITHIUM
     Indication: Bipolar disorder
     Dosage: 0.5-0-1
     Dates: start: 20240206, end: 20240208

REACTIONS (11)
  - Mucosal dryness [Fatal]
  - Hypovolaemia [Fatal]
  - Tongue dry [Fatal]
  - Skin turgor decreased [Fatal]
  - Restlessness [Fatal]
  - Renal impairment [Fatal]
  - Confusional state [Fatal]
  - Dry mouth [Fatal]
  - Syncope [Fatal]
  - Hypercalcaemia [Fatal]
  - Dehydration [Fatal]

NARRATIVE: CASE EVENT DATE: 20240101
